FAERS Safety Report 5176520-1 (Version None)
Quarter: 2006Q4

REPORT INFORMATION
  Report Type: 
  Country: None (occurrence: None)
  Receive Date: 20061215
  Receipt Date: 20060705
  Transmission Date: 20070319
  Serious: Yes (Life-Threatening, Hospitalization)
  Sender: FDA-Public Use
  Company Number: US-ROCHE-454427

PATIENT
  Age: 61 Year
  Sex: Female
  Weight: 65.3 kg

DRUGS (8)
  1. PEGASYS [Suspect]
     Dosage: PATIENT WAS OFF THERAPY FOR TEN DAYS.
     Route: 058
     Dates: start: 20060426
  2. PEGASYS [Suspect]
     Route: 058
     Dates: end: 20061115
  3. PEGASYS [Suspect]
     Route: 058
     Dates: start: 20061115
  4. RIBAVIRIN [Suspect]
     Dosage: FREQUENCY REPORTED AS 5/D. PATIENT WAS OFF THERAPY FOR TEN DAYS.
     Route: 048
     Dates: start: 20060426
  5. RIBAVIRIN [Suspect]
     Dosage: FREQUENCY REPORTED AS 5/D.
     Route: 048
  6. HYDROCHLOROTHIAZIDE [Suspect]
     Indication: HYPERTENSION
     Dosage: DRUG REPORTED AS SPIRONOLACTONE ALDACTONE/ HCTZ. STRENGTH REPORTED AS 25. FREQUENCY REPORTED AS 2/D.
     Route: 048
     Dates: end: 20060526
  7. ALDACTONE [Suspect]
     Indication: HYPERTENSION
     Route: 048
     Dates: end: 20060526
  8. SYNTHROID [Concomitant]
     Indication: HYPOTHYROIDISM
     Route: 048

REACTIONS (19)
  - ACCIDENT AT HOME [None]
  - BLOOD CHLORIDE DECREASED [None]
  - BLOOD ELECTROLYTES DECREASED [None]
  - CONFUSIONAL STATE [None]
  - COUGH [None]
  - DEHYDRATION [None]
  - DIARRHOEA [None]
  - DYSGEUSIA [None]
  - ENDODONTIC PROCEDURE [None]
  - HYPOKALAEMIA [None]
  - HYPONATRAEMIA [None]
  - HYPOTENSION [None]
  - LIP DRY [None]
  - NAUSEA [None]
  - PLATELET COUNT DECREASED [None]
  - POSTOPERATIVE WOUND INFECTION [None]
  - THYROID FUNCTION TEST ABNORMAL [None]
  - WHITE BLOOD CELL COUNT DECREASED [None]
  - WOUND INFECTION [None]
